FAERS Safety Report 7103628-3 (Version None)
Quarter: 2010Q4

REPORT INFORMATION
  Report Type: 
  Country: None (occurrence: None)
  Receive Date: 20101115
  Receipt Date: 20101110
  Transmission Date: 20110411
  Serious: Yes (Death)
  Sender: FDA-Public Use
  Company Number: US-CELGENEUS-163-21880-10102531

PATIENT
  Sex: Female

DRUGS (5)
  1. REVLIMID [Suspect]
     Route: 048
     Dates: start: 20100713, end: 20100812
  2. OXYCODONE HCL [Concomitant]
     Route: 065
  3. LACTULOSE [Concomitant]
     Route: 065
  4. LEVOTHYROXINE [Concomitant]
     Route: 065
  5. METOPROLOL [Concomitant]
     Route: 065

REACTIONS (2)
  - MYELOFIBROSIS [None]
  - SEPSIS [None]
